FAERS Safety Report 7429063-6 (Version None)
Quarter: 2011Q2

REPORT INFORMATION
  Report Type: 
  Country: None (occurrence: None)
  Receive Date: 20110421
  Receipt Date: 20110412
  Transmission Date: 20111010
  Serious: Yes (Hospitalization)
  Sender: FDA-Public Use
  Company Number: KR-ELI_LILLY_AND_COMPANY-KR201104003685

PATIENT
  Sex: Male
  Weight: 60.3 kg

DRUGS (4)
  1. VITAMIN B-12 [Concomitant]
     Indication: SUPPLEMENTATION THERAPY
     Dosage: 1 MG
     Route: 030
     Dates: start: 20080612
  2. FOLIC ACID [Concomitant]
     Indication: SUPPLEMENTATION THERAPY
     Dosage: 1 MG
     Route: 048
     Dates: start: 20080612
  3. PEMETREXED [Suspect]
     Indication: NON-SMALL CELL LUNG CANCER
     Dosage: 800 MG/M2, UNK
     Dates: start: 20080610
  4. DEXAMETHASONE [Concomitant]
     Indication: SUPPLEMENTATION THERAPY
     Dosage: 8 MG
     Route: 048
     Dates: start: 20080618

REACTIONS (3)
  - HYPOPHAGIA [None]
  - DIZZINESS [None]
  - ASTHENIA [None]
